FAERS Safety Report 17750411 (Version 3)
Quarter: 2020Q3

REPORT INFORMATION
  Report Type: Report from Study
  Country: US (occurrence: US)
  Receive Date: 20200506
  Receipt Date: 20200911
  Transmission Date: 20201102
  Serious: No
  Sender: FDA-Public Use
  Company Number: NVSC2020US122272

PATIENT
  Sex: Female

DRUGS (1)
  1. COSENTYX [Suspect]
     Active Substance: SECUKINUMAB
     Indication: PSORIASIS
     Dosage: 300 MG, UNKNOWN
     Route: 058
     Dates: start: 20191219, end: 20200502

REACTIONS (4)
  - Ocular hyperaemia [Recovering/Resolving]
  - Drug ineffective [Unknown]
  - Psoriasis [Recovering/Resolving]
  - Eye swelling [Recovering/Resolving]
